FAERS Safety Report 19882945 (Version 2)
Quarter: 2021Q4

REPORT INFORMATION
  Report Type: Spontaneous
  Country: AU (occurrence: AU)
  Receive Date: 20210925
  Receipt Date: 20211011
  Transmission Date: 20220304
  Serious: Yes (Other)
  Sender: FDA-Public Use
  Company Number: AU-ALXN-A202110568

PATIENT
  Age: 31 Year
  Sex: Male
  Weight: 130 kg

DRUGS (1)
  1. SOLIRIS [Suspect]
     Active Substance: ECULIZUMAB
     Indication: Paroxysmal nocturnal haemoglobinuria
     Dosage: UNK
     Route: 065
     Dates: start: 20150703

REACTIONS (4)
  - Hepatic cirrhosis [Unknown]
  - Portal vein cavernous transformation [Unknown]
  - Haemolysis [Unknown]
  - Splenomegaly [Unknown]
